FAERS Safety Report 9192270 (Version 1)
Quarter: 2013Q1

REPORT INFORMATION
  Report Type: Spontaneous
  Country: AU (occurrence: None)
  Receive Date: 20130325
  Receipt Date: 20130325
  Transmission Date: 20140127
  Serious: Yes (Other)
  Sender: FDA-Public Use
  Company Number: 2013000043

PATIENT
  Age: 76 Year
  Sex: Male

DRUGS (1)
  1. ACEON (PERINDOPRIL ERBUMINE) [Suspect]
     Indication: HYPERTENSION
     Route: 048
     Dates: start: 20120210, end: 20130211

REACTIONS (1)
  - Vasculitis necrotising [None]
